FAERS Safety Report 7651016-3 (Version None)
Quarter: 2011Q3

REPORT INFORMATION
  Report Type: 
  Country: None (occurrence: None)
  Receive Date: 20110727
  Receipt Date: 20110711
  Transmission Date: 20111222
  Serious: Yes (Other)
  Sender: FDA-Public Use
  Company Number: 2011MA008573

PATIENT
  Sex: Female

DRUGS (1)
  1. CARBAMAZEPINE [Suspect]
     Indication: EPILEPSY

REACTIONS (4)
  - GRAND MAL CONVULSION [None]
  - WATER INTOXICATION [None]
  - HYPONATRAEMIA [None]
  - SOCIAL PROBLEM [None]
